FAERS Safety Report 6945274-8 (Version None)
Quarter: 2010Q3

REPORT INFORMATION
  Report Type: 
  Country: None (occurrence: None)
  Receive Date: 20100827
  Receipt Date: 20100819
  Transmission Date: 20110219
  Serious: Yes (Hospitalization)
  Sender: FDA-Public Use
  Company Number: CA-JNJFOC-20100806801

PATIENT
  Sex: Male
  Weight: 143.79 kg

DRUGS (7)
  1. STELARA [Suspect]
     Indication: PSORIASIS
     Route: 058
  2. STELARA [Suspect]
     Route: 058
  3. ASPIRIN [Concomitant]
     Indication: CORONARY ARTERY DISEASE
  4. PERINDOPRIL ERBUMINE [Concomitant]
     Indication: HYPERTENSION
  5. HYDROCHLOROTHIAZIDE [Concomitant]
     Indication: CORONARY ARTERY DISEASE
  6. LIPITOR [Concomitant]
     Indication: CORONARY ARTERY DISEASE
  7. RESVERATROL [Concomitant]
     Indication: CORONARY ARTERY DISEASE

REACTIONS (1)
  - CORONARY ARTERY DISEASE [None]
